FAERS Safety Report 17428677 (Version 2)
Quarter: 2020Q4

REPORT INFORMATION
  Report Type: Other
  Country: BG (occurrence: BG)
  Receive Date: 20200218
  Receipt Date: 20201026
  Transmission Date: 20210113
  Serious: Yes (Other)
  Sender: FDA-Public Use
  Company Number: BG-ROCHE-2544134

PATIENT
  Age: 58 Year
  Sex: Female
  Weight: 67 kg

DRUGS (5)
  1. PERTUZUMAB. [Suspect]
     Active Substance: PERTUZUMAB
     Indication: BREAST CANCER
     Dosage: MOST RECENT DOSE PRIOR TO THE EVENT: 20/APR/2017
     Route: 042
     Dates: start: 20170330
  2. TRASTUZUMAB. [Suspect]
     Active Substance: TRASTUZUMAB
     Indication: BREAST CANCER
     Dosage: MOST RECENT DOSE PRIOR TO THE EVENT: 20/APR/2017
     Route: 041
     Dates: start: 20170330
  3. DOCETAXEL. [Suspect]
     Active Substance: DOCETAXEL
     Indication: BREAST CANCER
     Dosage: MOST RECENT DOSE WAS ADMINISTERED ON 22/JUN/2017
     Route: 042
     Dates: start: 20170309
  4. LAPATINIB [Suspect]
     Active Substance: LAPATINIB
     Indication: BREAST CANCER
     Dosage: MOST RECENT WAS ADMINISTERED ON 04/APR/2019.
     Route: 048
     Dates: start: 20190114
  5. CAPECITABINE. [Suspect]
     Active Substance: CAPECITABINE
     Indication: BREAST CANCER
     Dosage: MOST RECENT DOSE PRIOR TO THE EVENT: 22/FEB/2019
     Route: 048
     Dates: start: 20190104

REACTIONS (1)
  - Metastases to central nervous system [Not Recovered/Not Resolved]

NARRATIVE: CASE EVENT DATE: 20190404
